FAERS Safety Report 7914206-8 (Version None)
Quarter: 2011Q4

REPORT INFORMATION
  Report Type: 
  Country: None (occurrence: None)
  Receive Date: 20111115
  Receipt Date: 20111107
  Transmission Date: 20120403
  Serious: Yes (Other)
  Sender: FDA-Public Use
  Company Number: US-PFIZER INC-2011273009

PATIENT
  Age: 82 Year
  Sex: Male

DRUGS (2)
  1. ATORVASTATIN CALCIUM [Suspect]
     Dosage: UNK
     Dates: start: 19960101, end: 20030101
  2. SIMVASTATIN [Suspect]
     Dosage: 5 MG, DAILY
     Dates: start: 20090801, end: 20090801

REACTIONS (1)
  - POLYNEUROPATHY [None]
